FAERS Safety Report 4584435-2 (Version None)
Quarter: 2005Q1

REPORT INFORMATION
  Report Type: 
  Country: None (occurrence: None)
  Receive Date: 20050125
  Receipt Date: 20041203
  Transmission Date: 20050727
  Serious: No
  Sender: FDA-Public Use
  Company Number: USA041183766

PATIENT
  Age: 61 Year
  Sex: Female
  Weight: 52 kg

DRUGS (10)
  1. FORTEO [Suspect]
     Indication: OSTEOPOROSIS
     Dosage: 20 UG/1 DAY
     Dates: start: 20041108
  2. ATIVAN [Concomitant]
  3. NEXIUM [Concomitant]
  4. CARAFATE [Concomitant]
  5. FROVA (FROVATRIPTAN) [Concomitant]
  6. MULTI-VITAMIN [Concomitant]
  7. CITRACAL WITH VITAMIN D [Concomitant]
  8. TYLENOL (CAPLET) [Concomitant]
  9. VITAMIN B12 FOR INJECTION (CYANOCOBALAMIN) [Concomitant]
  10. ZINC [Concomitant]

REACTIONS (9)
  - ARTHRALGIA [None]
  - BALANCE DISORDER [None]
  - BONE PAIN [None]
  - HYPOAESTHESIA [None]
  - INJECTION SITE ERYTHEMA [None]
  - INJECTION SITE HAEMORRHAGE [None]
  - INJECTION SITE MASS [None]
  - INJECTION SITE REACTION [None]
  - NEURALGIA [None]
